FAERS Safety Report 4615628-3 (Version None)
Quarter: 2005Q1

REPORT INFORMATION
  Report Type: 
  Country: None (occurrence: None)
  Receive Date: 20050317
  Receipt Date: 20050302
  Transmission Date: 20050727
  Serious: Yes (Death)
  Sender: FDA-Public Use
  Company Number: L04-USA-07403-02

PATIENT
  Age: 53 Year
  Sex: Female

DRUGS (13)
  1. LEVOTHYROXINE [Suspect]
  2. ETHYLENE GLYCOL (POLYETHYLENE GLYCOL) [Suspect]
  3. GABAPENTIN [Suspect]
  4. PAROXETINE HCL [Suspect]
  5. ROFECOXIB [Suspect]
  6. TRAZODONE HCL [Suspect]
  7. LOVASTATIN [Suspect]
  8. CLONAZEPAM [Suspect]
  9. LORAZEPAM [Suspect]
  10. BENAZEPRIL HCL [Suspect]
  11. LANSOPRAZOLE [Suspect]
  12. MEDROXYPROGESTERONE [Suspect]
  13. ASPIRIN [Suspect]

REACTIONS (9)
  - ANOXIC ENCEPHALOPATHY [None]
  - CEREBRAL INFARCTION [None]
  - COMA [None]
  - COMPLETED SUICIDE [None]
  - DIZZINESS [None]
  - INTENTIONAL MISUSE [None]
  - LOSS OF CONSCIOUSNESS [None]
  - METABOLIC ACIDOSIS [None]
  - MYDRIASIS [None]
